FAERS Safety Report 13570429 (Version 3)
Quarter: 2017Q2

REPORT INFORMATION
  Report Type: Spontaneous
  Country: BR (occurrence: BR)
  Receive Date: 20170522
  Receipt Date: 20170627
  Transmission Date: 20170830
  Serious: Yes (Hospitalization, Other)
  Sender: FDA-Public Use
  Company Number: PHHY2017BR005841

PATIENT
  Sex: Female
  Weight: 63 kg

DRUGS (2)
  1. FORASEQ [Suspect]
     Active Substance: BUDESONIDE\FORMOTEROL FUMARATE
     Indication: BRONCHITIS
     Dosage: (60+60 CAPSULE), BID
     Route: 055
  2. AEROLIN [Concomitant]
     Active Substance: ALBUTEROL
     Indication: PRODUCT USED FOR UNKNOWN INDICATION
     Route: 065

REACTIONS (7)
  - Pneumonia [Unknown]
  - Viral upper respiratory tract infection [Unknown]
  - Contusion [Unknown]
  - Haemoptysis [Unknown]
  - Foot fracture [Unknown]
  - Fall [Unknown]
  - Wrong technique in product usage process [Unknown]
